FAERS Safety Report 5825883-X (Version None)
Quarter: 2008Q3

REPORT INFORMATION
  Report Type: 
  Country: None (occurrence: None)
  Receive Date: 20080729
  Receipt Date: 20080722
  Transmission Date: 20090109
  Serious: Yes (Hospitalization, Other)
  Sender: FDA-Public Use
  Company Number: MX-AVENTIS-200816801GDDC

PATIENT
  Age: 85 Year
  Sex: Male
  Weight: 54 kg

DRUGS (6)
  1. ARAVA [Suspect]
     Indication: RHEUMATOID ARTHRITIS
     Route: 048
     Dates: start: 20070301, end: 20071201
  2. ARCOXIA [Concomitant]
     Indication: RHEUMATOID ARTHRITIS
     Route: 048
  3. BI-EUGLUCON M [Concomitant]
     Indication: TYPE 2 DIABETES MELLITUS
     Dosage: DOSE: 500/5
     Route: 048
  4. UNAMOL [Concomitant]
     Route: 048
  5. PREDNISONE [Concomitant]
     Indication: RHEUMATOID ARTHRITIS
     Route: 048
  6. ENALAPRIL MALEATE [Concomitant]
     Route: 048

REACTIONS (5)
  - ALOPECIA [None]
  - DYSPHAGIA [None]
  - OESOPHAGEAL CANDIDIASIS [None]
  - OESOPHAGEAL STENOSIS [None]
  - RASH [None]
